FAERS Safety Report 16791004 (Version 1)
Quarter: 2019Q4

REPORT INFORMATION
  Report Type: Spontaneous
  Country: US (occurrence: US)
  Receive Date: 20190909
  Receipt Date: 20190909
  Transmission Date: 20200122
  Serious: Yes (Other)
  Sender: FDA-Public Use
  Company Number: None

PATIENT
  Age: 9 Year
  Sex: Male
  Weight: 36.9 kg

DRUGS (1)
  1. METHYLPHENIDATE HCL TAB 36MG ER [Suspect]
     Active Substance: METHYLPHENIDATE HYDROCHLORIDE
     Indication: ATTENTION DEFICIT/HYPERACTIVITY DISORDER
     Dosage: ?          QUANTITY:1 TABLET(S);?
     Route: 048
     Dates: start: 20190902, end: 20190904

REACTIONS (5)
  - Dizziness [None]
  - Product substitution issue [None]
  - Agitation [None]
  - Nausea [None]
  - Aggression [None]

NARRATIVE: CASE EVENT DATE: 20190902
